FAERS Safety Report 11633904 (Version 1)
Quarter: 2015Q4

REPORT INFORMATION
  Report Type: Spontaneous
  Country: US (occurrence: US)
  Receive Date: 20151015
  Receipt Date: 20151015
  Transmission Date: 20160304
  Serious: No
  Sender: FDA-Public Use
  Company Number: US-GLAXOSMITHKLINE-US2015GSK136187

PATIENT
  Age: 71 Year
  Sex: Female

DRUGS (1)
  1. FLOVENT [Suspect]
     Active Substance: FLUTICASONE PROPIONATE
     Indication: PRODUCT USED FOR UNKNOWN INDICATION
     Dosage: UNK

REACTIONS (11)
  - Gait disturbance [Unknown]
  - Nasal disorder [Unknown]
  - Dizziness [Unknown]
  - Ear pain [Unknown]
  - Amnesia [Unknown]
  - Disorientation [Unknown]
  - Headache [Unknown]
  - Otorrhoea [Unknown]
  - Head discomfort [Unknown]
  - Ear disorder [Unknown]
  - Rhinorrhoea [Unknown]

NARRATIVE: CASE EVENT DATE: 201406
